FAERS Safety Report 12470393 (Version 2)
Quarter: 2016Q2

REPORT INFORMATION
  Report Type: Spontaneous
  Country: US (occurrence: US)
  Receive Date: 20160616
  Receipt Date: 20160621
  Transmission Date: 20160815
  Serious: Yes (Other)
  Sender: FDA-Public Use
  Company Number: US-RECKITT BENCKISER HEALTHCARE INT LIMITED-RB-86834-2016

PATIENT
  Age: 26 Year
  Sex: Male

DRUGS (2)
  1. MUCINEX DM MAXIMUM STRENGTH [Suspect]
     Active Substance: DEXTROMETHORPHAN HYDROBROMIDE\GUAIFENESIN
     Indication: SINUS DISORDER
     Dosage: UNK
     Route: 065
  2. MUCINEX DM MAXIMUM STRENGTH [Suspect]
     Active Substance: DEXTROMETHORPHAN HYDROBROMIDE\GUAIFENESIN
     Indication: DRUG ABUSE
     Dosage: 33600 MG, SINGLE
     Route: 065

REACTIONS (8)
  - Intentional overdose [Unknown]
  - Incoherent [Unknown]
  - Speech disorder [Unknown]
  - Unevaluable event [Unknown]
  - Drug abuse [Unknown]
  - Drug dependence [Unknown]
  - Confusional state [Unknown]
  - Intentional product misuse [Unknown]
